FAERS Safety Report 13741762 (Version 2)
Quarter: 2017Q3

REPORT INFORMATION
  Report Type: Spontaneous
  Country: JP (occurrence: JP)
  Receive Date: 20170711
  Receipt Date: 20170911
  Transmission Date: 20171127
  Serious: Yes (Life-Threatening)
  Sender: FDA-Public Use
  Company Number: JP-PFIZER INC-2017293009

PATIENT
  Age: 69 Year
  Sex: Male
  Weight: 40.3 kg

DRUGS (10)
  1. BAYASPIRIN [Concomitant]
     Active Substance: ASPIRIN
     Dosage: UNK
     Route: 048
     Dates: start: 20170607, end: 20170627
  2. BIOFERMIN R [Concomitant]
     Active Substance: BACILLUS SUBTILIS\LACTOBACILLUS ACIDOPHILUS\STREPTOCOCCUS FAECAIS
     Dosage: UNK
     Route: 048
     Dates: start: 20170619, end: 20170627
  3. TYGACIL [Suspect]
     Active Substance: TIGECYCLINE
     Indication: CHOLANGITIS
  4. MEROPENEM. [Concomitant]
     Active Substance: MEROPENEM
     Dosage: UNK
     Route: 041
     Dates: start: 20170610, end: 20170627
  5. LIPACREON [Concomitant]
     Active Substance: PANCRELIPASE
     Dosage: UNK
     Route: 048
     Dates: start: 20170426, end: 20170627
  6. TYGACIL [Suspect]
     Active Substance: TIGECYCLINE
     Indication: BACTERAEMIA
     Dosage: 50 MG, 2X/DAY
     Route: 041
     Dates: start: 20170613, end: 20170627
  7. ELIETEN [Concomitant]
     Active Substance: METOCLOPRAMIDE
     Dosage: UNK
     Dates: start: 20170616, end: 20170627
  8. MIYA-BM [Concomitant]
     Active Substance: CLOSTRIDIUM BUTYRICUM SPORES STRAIN M-55
     Dosage: UNK
     Route: 048
     Dates: start: 20170619, end: 20170627
  9. LOPERAMIDE [Concomitant]
     Active Substance: LOPERAMIDE
     Dosage: UNK
     Route: 048
     Dates: start: 20170619, end: 20170627
  10. FAMOTIDINE. [Concomitant]
     Active Substance: FAMOTIDINE
     Dosage: UNK
     Dates: start: 20170620, end: 20170627

REACTIONS (2)
  - Haemorrhage [Recovering/Resolving]
  - Coagulopathy [Recovering/Resolving]

NARRATIVE: CASE EVENT DATE: 20170627
